FAERS Safety Report 5358361-5 (Version None)
Quarter: 2007Q2

REPORT INFORMATION
  Report Type: 
  Country: None (occurrence: None)
  Receive Date: 20070530
  Receipt Date: 20061004
  Transmission Date: 20071010
  Serious: Yes (Other)
  Sender: FDA-Public Use
  Company Number: US200601002039

PATIENT
  Age: 60 Year
  Sex: Female
  Weight: 77.1 kg

DRUGS (14)
  1. ZYPREXA [Suspect]
     Indication: DEPRESSION
     Dosage: 17.5 MG, DAILY (1/D)
     Dates: start: 20030115, end: 20031123
  2. ZYPREXA [Suspect]
     Indication: DEPRESSION
     Dosage: 17.5 MG, DAILY (1/D)
     Dates: start: 20031124
  3. NEURONTIN [Concomitant]
  4. CELEBREX [Concomitant]
  5. PROMETHAZINE [Concomitant]
  6. PREMARIN [Concomitant]
  7. HYDROCODONE BITARTRATE + ACETAMINOPHEN [Concomitant]
  8. TRAZODONE HCL [Concomitant]
  9. ASA TABS [Concomitant]
  10. ZOCOR [Concomitant]
  11. LIPITOR [Concomitant]
  12. DIFLUCAN [Concomitant]
  13. PAROXETINE [Concomitant]
  14. BENTYL [Concomitant]

REACTIONS (6)
  - DIABETES MELLITUS NON-INSULIN-DEPENDENT [None]
  - HEPATIC STEATOSIS [None]
  - HYPERLIPIDAEMIA [None]
  - MYOCARDIAL ISCHAEMIA [None]
  - PANCREATITIS CHRONIC [None]
  - WEIGHT INCREASED [None]
